FAERS Safety Report 6347334-1 (Version None)
Quarter: 2009Q3

REPORT INFORMATION
  Report Type: 
  Country: None (occurrence: None)
  Receive Date: 20090910
  Receipt Date: 20090903
  Transmission Date: 20100115
  Serious: Yes (Other)
  Sender: FDA-Public Use
  Company Number: GB-SP-2009-03789

PATIENT
  Age: 60 Year
  Sex: Male

DRUGS (2)
  1. BCG  THERAPEUTICS [Suspect]
     Indication: BLADDER CANCER
     Route: 043
  2. BCG  THERAPEUTICS [Suspect]
     Route: 043

REACTIONS (2)
  - ARTHRALGIA [None]
  - ARTHRITIS [None]
